FAERS Safety Report 25505209 (Version 1)
Quarter: 2025Q3

REPORT INFORMATION
  Report Type: Spontaneous
  Country: US (occurrence: US)
  Receive Date: 20250702
  Receipt Date: 20250702
  Transmission Date: 20251020
  Serious: No
  Sender: MYLAN
  Company Number: US-MYLANLABS-2025M1052747

PATIENT
  Age: 80 Year
  Sex: Male

DRUGS (1)
  1. TYRVAYA [Suspect]
     Active Substance: VARENICLINE TARTRATE
     Indication: Product used for unknown indication

REACTIONS (4)
  - Cough [Unknown]
  - Drug effect less than expected [Unknown]
  - Physical product label issue [Unknown]
  - Suspected product quality issue [Unknown]
